FAERS Safety Report 20167252 (Version 1)
Quarter: 2021Q4

REPORT INFORMATION
  Report Type: Spontaneous
  Country: US (occurrence: None)
  Receive Date: 20211208
  Receipt Date: 20211208
  Transmission Date: 20220303
  Serious: Yes (Death, Other)
  Sender: FDA-Public Use
  Company Number: None

PATIENT
  Age: 71 Year
  Sex: Male
  Weight: 90.5 kg

DRUGS (1)
  1. BARICITINIB [Suspect]
     Active Substance: BARICITINIB
     Indication: COVID-19
     Dosage: FREQUENCY : DAILY;?
     Route: 048
     Dates: start: 20211027, end: 20211109

REACTIONS (6)
  - Blood culture positive [None]
  - Staphylococcal sepsis [None]
  - Aspergillus infection [None]
  - Systemic bacterial infection [None]
  - General physical health deterioration [None]
  - Scan abnormal [None]

NARRATIVE: CASE EVENT DATE: 20211206
